FAERS Safety Report 24084253 (Version 1)
Quarter: 2024Q3

REPORT INFORMATION
  Report Type: Spontaneous
  Country: GB (occurrence: GB)
  Receive Date: 20240712
  Receipt Date: 20240712
  Transmission Date: 20241016
  Serious: Yes (Disabling, Other)
  Sender: ROCHE
  Company Number: None

PATIENT
  Age: 78 Year
  Sex: Male
  Weight: 59 kg

DRUGS (1)
  1. ATEZOLIZUMAB [Suspect]
     Active Substance: ATEZOLIZUMAB
     Indication: Small cell lung cancer
     Route: 065
     Dates: start: 20231016

REACTIONS (4)
  - Vision blurred [Not Recovered/Not Resolved]
  - Visual impairment [Unknown]
  - Retinal degeneration [Unknown]
  - Retinopathy [Unknown]

NARRATIVE: CASE EVENT DATE: 20240208
